FAERS Safety Report 8565330-0 (Version None)
Quarter: 2012Q3

REPORT INFORMATION
  Report Type: 
  Country: None (occurrence: None)
  Receive Date: 20120724
  Receipt Date: 20120709
  Transmission Date: 20120928
  Serious: Yes (Disabling)
  Sender: FDA-Public Use
  Company Number: 2012R1-56516

PATIENT
  Age: 47 Year
  Sex: Female
  Weight: 78 kg

DRUGS (3)
  1. FLUCLOXACILLIN (FLUCLOXACILLIN) UNKNOWN [Suspect]
     Indication: SKIN INFECTION
     Dates: start: 20120429, end: 20120502
  2. MICRONOR [Concomitant]
  3. AMOXICILLIN [Suspect]
     Indication: SKIN INFECTION
     Dates: start: 20120429

REACTIONS (4)
  - CONSTIPATION [None]
  - GASTROINTESTINAL HAEMORRHAGE [None]
  - MELAENA [None]
  - ABDOMINAL PAIN [None]
